FAERS Safety Report 26178228 (Version 1)
Quarter: 2025Q4

REPORT INFORMATION
  Report Type: Spontaneous
  Country: EU (occurrence: EU)
  Receive Date: 20251219
  Receipt Date: 20251219
  Transmission Date: 20260118
  Serious: Yes (Other)
  Sender: TEVA
  Company Number: None

PATIENT
  Age: 32 Year
  Sex: Male
  Weight: 68 kg

DRUGS (2)
  1. LAMOTRIGINE [Suspect]
     Active Substance: LAMOTRIGINE
     Indication: Epilepsy
     Dosage: 300MG TWICE A DAY
     Route: 048
     Dates: start: 2009
  2. LACOSAMIDE [Suspect]
     Active Substance: LACOSAMIDE
     Indication: Epilepsy
     Dosage: 200MG TWICE A DAY
     Route: 048
     Dates: start: 2012

REACTIONS (2)
  - Cholestasis [Not Recovered/Not Resolved]
  - Circulating anticoagulant [Not Recovered/Not Resolved]

NARRATIVE: CASE EVENT DATE: 20241206
